FAERS Safety Report 8336951-5 (Version None)
Quarter: 2012Q2

REPORT INFORMATION
  Report Type: 
  Country: None (occurrence: None)
  Receive Date: 20120504
  Receipt Date: 20120320
  Transmission Date: 20120825
  Serious: No
  Sender: FDA-Public Use
  Company Number: US-GLAXOSMITHKLINE-A0970529A

PATIENT
  Age: 76 Year
  Sex: Female

DRUGS (4)
  1. DILAUDID [Concomitant]
  2. VITAMIN TAB [Concomitant]
  3. HORIZANT [Suspect]
     Indication: NEURALGIA
     Dosage: 600MG AT NIGHT
     Route: 048
     Dates: start: 20120201
  4. WARFARIN SODIUM [Concomitant]

REACTIONS (3)
  - SLEEP DISORDER [None]
  - HYPERSOMNIA [None]
  - BALANCE DISORDER [None]
